FAERS Safety Report 23779742 (Version 1)
Quarter: 2024Q2

REPORT INFORMATION
  Report Type: Report from Study
  Country: US (occurrence: US)
  Receive Date: 20240424
  Receipt Date: 20240424
  Transmission Date: 20240716
  Serious: Yes (Other)
  Sender: FDA-Public Use
  Company Number: US-ABBVIE-5731118

PATIENT
  Age: 74 Year
  Sex: Male

DRUGS (6)
  1. VENCLEXTA [Suspect]
     Active Substance: VENETOCLAX
     Indication: Chronic lymphocytic leukaemia
     Dosage: WEEK 1 FORM STRENGTH 10 MG?TAKE 1 TABLET ORAL ONCE A DAY FOR 7 DAYS
     Route: 048
     Dates: start: 20231113, end: 20231113
  2. VENCLEXTA [Suspect]
     Active Substance: VENETOCLAX
     Indication: Chronic lymphocytic leukaemia
     Dosage: WEEK 2 FORM STRENGTH 50 MG?TAKE 1 TABLET ORAL ONCE A DAY FOR 7 DAYS
     Route: 048
     Dates: start: 20231120, end: 20231120
  3. VENCLEXTA [Suspect]
     Active Substance: VENETOCLAX
     Indication: Chronic lymphocytic leukaemia
     Dosage: WEEK 3 FORM STRENGTH 100 MG?TAKE 1 TABLET ORAL ONCE A DAY FOR 7 DAYS
     Route: 048
     Dates: start: 20231127, end: 20231127
  4. VENCLEXTA [Suspect]
     Active Substance: VENETOCLAX
     Indication: Chronic lymphocytic leukaemia
     Dosage: WEEK 4 FORM STRENGTH 100 MG?TAKE 2 TABLETS ORAL ONCE A DAY FOR 7 DAYS
     Route: 048
     Dates: start: 20231204, end: 20231204
  5. VENCLEXTA [Suspect]
     Active Substance: VENETOCLAX
     Indication: Chronic lymphocytic leukaemia
     Dosage: WEEK 5 FORM STRENGTH 100 MG?TAKE 4 TABLETS ORAL ONCE A DAY FOR 7 DAYS
     Route: 048
     Dates: start: 20231211, end: 20231211
  6. VENCLEXTA [Suspect]
     Active Substance: VENETOCLAX
     Indication: Chronic lymphocytic leukaemia
     Dosage: FORM STRENGTH 100 MG DAILY?TAKE 4 TABLETS ORAL DAILY
     Route: 048

REACTIONS (1)
  - Benign neoplasm of skin [Unknown]

NARRATIVE: CASE EVENT DATE: 20240401
